FAERS Safety Report 5507204-5 (Version None)
Quarter: 2007Q4

REPORT INFORMATION
  Report Type: 
  Country: None (occurrence: None)
  Receive Date: 20071102
  Receipt Date: 20071018
  Transmission Date: 20080405
  Serious: Yes (Hospitalization)
  Sender: FDA-Public Use
  Company Number: GXKR2007US08989

PATIENT
  Age: 53 Year
  Sex: Female

DRUGS (2)
  1. RIBAVIRN [Suspect]
     Indication: HEPATITIS C VIRUS
     Dosage: 1200 MG, DAILY
  2. PEGINTERFERON ALFA-2A(PEGINTERFERON ALFA-2A) [Suspect]
     Indication: HEPATITIS C VIRUS
     Dosage: 180 UG WEEKLY

REACTIONS (6)
  - ABDOMINAL PAIN [None]
  - NEUTROPENIC COLITIS [None]
  - PLATELET COUNT DECREASED [None]
  - PYREXIA [None]
  - TENDERNESS [None]
  - WHITE BLOOD CELL COUNT DECREASED [None]
